FAERS Safety Report 5938318-3 (Version None)
Quarter: 2008Q4

REPORT INFORMATION
  Report Type: 
  Country: None (occurrence: None)
  Receive Date: 20081103
  Receipt Date: 20081022
  Transmission Date: 20090506
  Serious: Yes (Other)
  Sender: FDA-Public Use
  Company Number: US-JNJFOC-20081005811

PATIENT
  Sex: Female

DRUGS (1)
  1. REMICADE [Suspect]
     Indication: CROHN'S DISEASE
     Dosage: ABOUT 10 YEARS AGO FOR 2 YEARS
     Route: 042

REACTIONS (2)
  - HYPERSENSITIVITY [None]
  - HYSTERECTOMY [None]
